FAERS Safety Report 4393016-5 (Version None)
Quarter: 2004Q3

REPORT INFORMATION
  Report Type: 
  Country: None (occurrence: None)
  Receive Date: 20040708
  Receipt Date: 20040429
  Transmission Date: 20050211
  Serious: Yes (Other)
  Sender: FDA-Public Use
  Company Number: ES-GLAXOSMITHKLINE-B0331580A

PATIENT
  Age: 34 Year
  Sex: Male

DRUGS (1)
  1. BUPROPION HYDROCHLORIDE [Suspect]
     Indication: SMOKING CESSATION THERAPY
     Route: 048
     Dates: start: 20031220, end: 20040103

REACTIONS (7)
  - AGGRESSION [None]
  - ANXIETY [None]
  - CONDITION AGGRAVATED [None]
  - DEPERSONALISATION [None]
  - FOOD INTERACTION [None]
  - IRRITABILITY [None]
  - MEMORY IMPAIRMENT [None]
